FAERS Safety Report 23457640 (Version 1)
Quarter: 2024Q1

REPORT INFORMATION
  Report Type: Spontaneous
  Country: US (occurrence: US)
  Receive Date: 20240130
  Receipt Date: 20240130
  Transmission Date: 20240410
  Serious: No
  Sender: FDA-Public Use
  Company Number: US-GALDERMA-US2023003312

PATIENT

DRUGS (3)
  1. IVERMECTIN [Suspect]
     Active Substance: IVERMECTIN
     Indication: Rosacea
     Dosage: 1 DOSAGE FORM
     Route: 061
     Dates: start: 20230214, end: 202302
  2. IVERMECTIN [Suspect]
     Active Substance: IVERMECTIN
     Dosage: 1 DOSAGE FORM
     Route: 061
     Dates: start: 20230221, end: 20230225
  3. IVERMECTIN [Suspect]
     Active Substance: IVERMECTIN
     Dosage: 1 DOSAGE FORM
     Route: 061
     Dates: start: 20230228, end: 20230228

REACTIONS (5)
  - Rosacea [Recovered/Resolved]
  - Dry skin [Recovered/Resolved]
  - Skin burning sensation [Recovered/Resolved]
  - Pruritus [Recovered/Resolved]
  - Pain of skin [Recovered/Resolved]

NARRATIVE: CASE EVENT DATE: 20230214
